FAERS Safety Report 12366512 (Version 1)
Quarter: 2016Q2

REPORT INFORMATION
  Report Type: Spontaneous
  Country: TW (occurrence: TW)
  Receive Date: 20160513
  Receipt Date: 20160513
  Transmission Date: 20160815
  Serious: Yes (Hospitalization, Other)
  Sender: FDA-Public Use
  Company Number: TW-BAYER-2016-087386

PATIENT
  Age: 72 Year
  Sex: Male

DRUGS (1)
  1. REGORAFENIB [Suspect]
     Active Substance: REGORAFENIB
     Indication: GASTROINTESTINAL STROMAL CANCER
     Dosage: UNK
     Route: 048
     Dates: start: 201405

REACTIONS (3)
  - Atrial fibrillation [Recovering/Resolving]
  - Myocardial ischaemia [Recovering/Resolving]
  - Coronary artery disease [None]
